FAERS Safety Report 18235580 (Version 1)
Quarter: 2020Q3

REPORT INFORMATION
  Report Type: Spontaneous
  Country: FR (occurrence: FR)
  Receive Date: 20200905
  Receipt Date: 20200905
  Transmission Date: 20201103
  Serious: Yes (Hospitalization)
  Sender: FDA-Public Use
  Company Number: FR-TEVA-2020-FR-1822738

PATIENT
  Age: 91 Year
  Sex: Female
  Weight: 55 kg

DRUGS (9)
  1. LASILIX FAIBLE 20 MG, COMPRIME [Suspect]
     Active Substance: FUROSEMIDE
     Indication: HYPERTENSION
     Dosage: 1 DOSAGE FORMS
     Route: 048
     Dates: end: 20200731
  2. TIMOFEROL [Concomitant]
     Active Substance: ASCORBIC ACID\FERROUS SULFATE
     Dosage: 1 DOSAGE FORMS
     Route: 048
  3. OMEPRAZOLE. [Concomitant]
     Active Substance: OMEPRAZOLE
     Dosage: 10MG
     Route: 048
     Dates: start: 20200729
  4. TEMESTA 2,5 MG, COMPRIME SECABLE [Concomitant]
     Active Substance: LORAZEPAM
     Dosage: 1 DOSAGE FORMS
     Route: 048
  5. FLECAINE L.P. 100 MG, GELULE A LIBERATION PROLONGEE [Concomitant]
     Active Substance: FLECAINIDE ACETATE
     Dosage: 1 DOSAGE FORMS
     Route: 048
  6. IRBESARTAN. [Suspect]
     Active Substance: IRBESARTAN
     Indication: HYPERTENSION
     Dosage: 300MG
     Route: 048
     Dates: end: 20200731
  7. PRADAXA [Concomitant]
     Active Substance: DABIGATRAN ETEXILATE MESYLATE
     Dosage: 2 DOSAGE FORMS
     Route: 048
  8. DOLIPRANE [Concomitant]
     Active Substance: ACETAMINOPHEN
     Route: 048
  9. ESCITALOPRAM [Suspect]
     Active Substance: ESCITALOPRAM OXALATE
     Indication: DEPRESSION
     Dosage: 100MG
     Route: 048
     Dates: end: 20200731

REACTIONS (2)
  - Hypokalaemia [Recovered/Resolved]
  - Hyponatraemia [Recovering/Resolving]

NARRATIVE: CASE EVENT DATE: 20200730
